FAERS Safety Report 5153616-1 (Version None)
Quarter: 2006Q4

REPORT INFORMATION
  Report Type: 
  Country: None (occurrence: None)
  Receive Date: 20061113
  Receipt Date: 20061030
  Transmission Date: 20070319
  Serious: Yes (Disabling)
  Sender: FDA-Public Use
  Company Number: 2006134212

PATIENT
  Age: 43 Year
  Weight: 100 kg

DRUGS (7)
  1. HYDROCORTISONE ACETATE [Suspect]
     Indication: HYPOPITUITARISM
     Dosage: (10 MG), ORAL
     Route: 048
     Dates: start: 20060301, end: 20060501
  2. CARBAMAZEPINE [Concomitant]
  3. DIAZEPAM [Concomitant]
  4. LEVETIRACETAM [Concomitant]
  5. PHENYTOIN [Concomitant]
  6. SULPIRIDE (SULPIRIDE) [Concomitant]
  7. TOPIRAMATE [Concomitant]

REACTIONS (7)
  - CONDITION AGGRAVATED [None]
  - EPILEPSY [None]
  - HALLUCINATION, AUDITORY [None]
  - IRRITABILITY [None]
  - MUSCLE TWITCHING [None]
  - PERSECUTORY DELUSION [None]
  - PSYCHOTIC DISORDER [None]
